FAERS Safety Report 18795231 (Version 2)
Quarter: 2021Q1

REPORT INFORMATION
  Report Type: Spontaneous
  Country: AE (occurrence: AE)
  Receive Date: 20210127
  Receipt Date: 20210220
  Transmission Date: 20210419
  Serious: Yes (Hospitalization)
  Sender: FDA-Public Use
  Company Number: AE-UCBSA-2021003857

PATIENT
  Age: 72 Year
  Sex: Female

DRUGS (1)
  1. CIMZIA [Suspect]
     Active Substance: CERTOLIZUMAB PEGOL
     Indication: RHEUMATOID ARTHRITIS
     Dosage: 400 MILLIGRAM, MONTHLY (QM)
     Dates: start: 20170331, end: 202012

REACTIONS (1)
  - Cholelithiasis [Unknown]
